FAERS Safety Report 24897730 (Version 3)
Quarter: 2025Q1

REPORT INFORMATION
  Report Type: Spontaneous
  Country: US (occurrence: US)
  Receive Date: 20250129
  Receipt Date: 20250211
  Transmission Date: 20250408
  Serious: No
  Sender: AMGEN
  Company Number: US-AMGEN-USASP2025014435

PATIENT
  Age: 66 Year
  Sex: Male
  Weight: 108.84 kg

DRUGS (5)
  1. NEULASTA [Suspect]
     Active Substance: PEGFILGRASTIM
     Indication: Prophylaxis
     Route: 065
  2. NEULASTA [Suspect]
     Active Substance: PEGFILGRASTIM
     Route: 065
  3. DURVALUMAB [Concomitant]
     Active Substance: DURVALUMAB
  4. CISPLATIN [Concomitant]
     Active Substance: CISPLATIN
  5. ETOPOSIDE [Concomitant]
     Active Substance: ETOPOSIDE

REACTIONS (2)
  - Unintentional medical device removal [Unknown]
  - Drug dose omission by device [Unknown]

NARRATIVE: CASE EVENT DATE: 20250101
